FAERS Safety Report 4798649-X (Version None)
Quarter: 2005Q4

REPORT INFORMATION
  Report Type: 
  Country: None (occurrence: None)
  Receive Date: 20051014
  Receipt Date: 20051003
  Transmission Date: 20060501
  Serious: Yes (Hospitalization)
  Sender: FDA-Public Use
  Company Number: US-MERCK-0510USA01779

PATIENT
  Age: 74 Year
  Sex: Male
  Weight: 95 kg

DRUGS (10)
  1. VIOXX [Suspect]
     Indication: ARTHRITIS
     Route: 048
     Dates: start: 19990101, end: 20040101
  2. PREDNISONE [Concomitant]
     Route: 065
  3. ZITHROMAX [Concomitant]
     Route: 065
  4. COZAAR [Concomitant]
     Route: 065
  5. PRILOSEC [Concomitant]
     Route: 065
  6. ASTELIN [Concomitant]
     Route: 065
  7. CARDIZEM [Concomitant]
     Route: 065
  8. ACCOLATE [Concomitant]
     Route: 065
  9. SYNTHROID [Concomitant]
     Route: 065
  10. AMIGESIC [Concomitant]
     Route: 065

REACTIONS (2)
  - CARDIAC DISORDER [None]
  - MYOCARDIAL INFARCTION [None]
